FAERS Safety Report 8302305-0 (Version None)
Quarter: 2012Q2

REPORT INFORMATION
  Report Type: 
  Country: None (occurrence: None)
  Receive Date: 20120418
  Receipt Date: 20120418
  Transmission Date: 20120825
  Serious: Yes (Hospitalization)
  Sender: FDA-Public Use
  Company Number: None

PATIENT
  Age: 62 Year
  Sex: Male
  Weight: 153 kg

DRUGS (1)
  1. ROPINIROLE [Suspect]
     Indication: PARKINSON'S DISEASE
     Dosage: 1 TAB QID PO
     Route: 048
     Dates: start: 20120213, end: 20120305

REACTIONS (3)
  - ORTHOSTATIC HYPOTENSION [None]
  - SOMNOLENCE [None]
  - SYNCOPE [None]
